FAERS Safety Report 20320796 (Version 3)
Quarter: 2022Q1

REPORT INFORMATION
  Report Type: Other
  Country: SK (occurrence: SK)
  Receive Date: 20220111
  Receipt Date: 20220219
  Transmission Date: 20220424
  Serious: Yes (Death, Hospitalization, Other)
  Sender: FDA-Public Use
  Company Number: SK-CELLTRION INC.-2022SK000037

PATIENT

DRUGS (4)
  1. RITUXIMAB [Suspect]
     Active Substance: RITUXIMAB
     Indication: Product used for unknown indication
     Dosage: UNK UNK, UNKNOWN FREQ.
     Route: 065
  2. POLIVY [Suspect]
     Active Substance: POLATUZUMAB VEDOTIN-PIIQ
     Indication: Diffuse large B-cell lymphoma recurrent
     Dosage: UNK UNK, UNKNOWN FREQ.
     Route: 065
  3. POLIVY [Suspect]
     Active Substance: POLATUZUMAB VEDOTIN-PIIQ
     Dosage: UNK UNK, UNKNOWN FREQ.
     Route: 065
  4. BENDAMUSTINE HYDROCHLORIDE [Suspect]
     Active Substance: BENDAMUSTINE HYDROCHLORIDE
     Indication: Product used for unknown indication
     Dosage: UNK UNK, CYCLIC
     Route: 042

REACTIONS (5)
  - Malignant neoplasm progression [Fatal]
  - Neurological symptom [Fatal]
  - Nervous system disorder [Fatal]
  - COVID-19 [Fatal]
  - Drug ineffective [Fatal]
